FAERS Safety Report 13282259 (Version 1)
Quarter: 2017Q1

REPORT INFORMATION
  Report Type: Spontaneous
  Country: US (occurrence: US)
  Receive Date: 20170301
  Receipt Date: 20170301
  Transmission Date: 20170428
  Serious: Yes (Disabling)
  Sender: FDA-Public Use
  Company Number: None

PATIENT
  Age: 36 Year
  Sex: Male
  Weight: 90.72 kg

DRUGS (8)
  1. MAGNESIUM [Concomitant]
     Active Substance: MAGNESIUM
  2. VITAMIN B COMPLEX [Concomitant]
     Active Substance: CYANOCOBALAMIN\DEXPANTHENOL\NIACINAMIDE\PYRIDOXINE HYDROCHLORIDE\RIBOFLAVIN 5^-PHOSPHATE SODIUM\THIAMINE HYDROCHLORIDE\VITAMIN B COMPLEX
  3. VITAMIN D [Concomitant]
     Active Substance: CHOLECALCIFEROL
  4. DIVALPROEX SODIUM DR 500 MG [Suspect]
     Active Substance: DIVALPROEX SODIUM
     Indication: SEIZURE
     Dosage: TWICE DAILY 500 AM 1,000 PM
     Dates: start: 20160616
  5. CO-Q-TEN [Concomitant]
  6. PROBIOTICS [Concomitant]
     Active Substance: PROBIOTICS NOS
  7. AXIRON [Concomitant]
     Active Substance: TESTOSTERONE
  8. VALACYCLOVIR [Concomitant]
     Active Substance: VALACYCLOVIR HYDROCHLORIDE

REACTIONS (2)
  - Muscle twitching [None]
  - Aphonia [None]

NARRATIVE: CASE EVENT DATE: 20160701
